FAERS Safety Report 22738191 (Version 6)
Quarter: 2024Q1

REPORT INFORMATION
  Report Type: Report from Study
  Country: DE (occurrence: DE)
  Receive Date: 20230721
  Receipt Date: 20240308
  Transmission Date: 20240410
  Serious: Yes (Other)
  Sender: FDA-Public Use
  Company Number: DE-PFM-2023-04085

PATIENT
  Sex: Male
  Weight: 102 kg

DRUGS (6)
  1. BRAFTOVI [Suspect]
     Active Substance: ENCORAFENIB
     Indication: Colorectal cancer
     Dosage: 300 MG/DAY
     Route: 048
     Dates: start: 20230222, end: 20230612
  2. BRAFTOVI [Suspect]
     Active Substance: ENCORAFENIB
     Dosage: 200 MG/DAY
     Route: 048
     Dates: start: 20230613, end: 20230621
  3. BRAFTOVI [Suspect]
     Active Substance: ENCORAFENIB
     Dosage: 100 MG, UNK
     Route: 065
     Dates: start: 20230622, end: 20231212
  4. CETUXIMAB [Suspect]
     Active Substance: CETUXIMAB
     Indication: Colorectal cancer
     Dosage: 250 MG/M2, WEEKLY
     Route: 042
     Dates: start: 20230227
  5. FOLIC ACID [Concomitant]
     Active Substance: FOLIC ACID
     Indication: Prophylaxis
     Dosage: UNK MG, DAILY
     Route: 048
  6. VITAMIN D3 HEVERT [Concomitant]
     Indication: Prophylaxis
     Dosage: UNK MG, DAILY
     Route: 048

REACTIONS (3)
  - Paralysis [Not Recovered/Not Resolved]
  - Headache [Not Recovered/Not Resolved]
  - Product use issue [Unknown]

NARRATIVE: CASE EVENT DATE: 20230601
